FAERS Safety Report 20260916 (Version 1)
Quarter: 2021Q4

REPORT INFORMATION
  Report Type: Spontaneous
  Country: US (occurrence: US)
  Receive Date: 20211230
  Receipt Date: 20211230
  Transmission Date: 20220303
  Serious: Yes (Other)
  Sender: FDA-Public Use
  Company Number: US-AVET LIFESCIENCES LTD-2021-AVET-000083

PATIENT
  Age: 19 Year
  Sex: Male

DRUGS (3)
  1. SERTRALINE HYDROCHLORIDE [Suspect]
     Active Substance: SERTRALINE HYDROCHLORIDE
     Indication: Obsessive-compulsive disorder
     Dosage: 25 MG OF SERTRALINE DAILY, WHICH WAS UPTITRATED TO 175 MG DAILY
  2. SERTRALINE HYDROCHLORIDE [Suspect]
     Active Substance: SERTRALINE HYDROCHLORIDE
     Dosage: UPTITRATED TO 175MG IN 2 MONTHS
  3. SERTRALINE HYDROCHLORIDE [Suspect]
     Active Substance: SERTRALINE HYDROCHLORIDE
     Dosage: THE DOSE WAS GRADUALLY DECREASED TO 125MG DAILY;

REACTIONS (3)
  - Tinnitus [Unknown]
  - Nausea [Unknown]
  - Electric shock sensation [Recovering/Resolving]
